FAERS Safety Report 13498849 (Version 1)
Quarter: 2017Q2

REPORT INFORMATION
  Report Type: Spontaneous
  Country: US (occurrence: US)
  Receive Date: 20170429
  Receipt Date: 20170429
  Transmission Date: 20170830
  Serious: Yes (Other)
  Sender: FDA-Public Use
  Company Number: None

PATIENT
  Age: 73 Year
  Sex: Male
  Weight: 88.65 kg

DRUGS (1)
  1. JANUVIA [Suspect]
     Active Substance: SITAGLIPTIN PHOSPHATE
     Indication: DIABETES MELLITUS
     Route: 048
     Dates: start: 20090430, end: 20160722

REACTIONS (4)
  - Oedema peripheral [None]
  - Arthralgia [None]
  - Synovial disorder [None]
  - Polyarthritis [None]

NARRATIVE: CASE EVENT DATE: 20160601
